FAERS Safety Report 11640399 (Version 2)
Quarter: 2015Q4

REPORT INFORMATION
  Report Type: Report from Study
  Country: JP (occurrence: JP)
  Receive Date: 20151019
  Receipt Date: 20151214
  Transmission Date: 20160304
  Serious: Yes (Other)
  Sender: FDA-Public Use
  Company Number: JP-JNJFOC-20140609580

PATIENT
  Age: 31 Year
  Sex: Male

DRUGS (26)
  1. PREZISTA [Suspect]
     Active Substance: DARUNAVIR ETHANOLATE
     Indication: HIV INFECTION
     Route: 048
     Dates: start: 20120418
  2. PENTAMIDINE [Concomitant]
     Active Substance: PENTAMIDINE
     Indication: ANTIFUNGAL PROPHYLAXIS
     Route: 055
     Dates: start: 20120124, end: 20121212
  3. BESELNA [Concomitant]
     Indication: ANOGENITAL WARTS
     Route: 061
     Dates: start: 20120711, end: 20121017
  4. SAWACILLIN [Concomitant]
     Active Substance: AMOXICILLIN
     Indication: SYPHILIS
     Route: 048
     Dates: start: 20150323
  5. LOXOPROFEN [Concomitant]
     Active Substance: LOXOPROFEN
     Indication: GOUT
     Route: 048
     Dates: start: 20121003, end: 20121212
  6. BENECID [Concomitant]
     Active Substance: PROBENECID
     Indication: SYPHILIS
     Route: 048
     Dates: start: 20150323
  7. SULFAMETHOXAZOLE AND TRIMETHOPRIM [Concomitant]
     Active Substance: SULFAMETHOXAZOLE\TRIMETHOPRIM
     Indication: ANTIFUNGAL PROPHYLAXIS
     Route: 048
     Dates: start: 20120111, end: 20120123
  8. LAMISIL [Concomitant]
     Active Substance: TERBINAFINE HYDROCHLORIDE
     Indication: TINEA PEDIS
     Route: 061
     Dates: start: 20131106, end: 20131217
  9. ANTEBATE [Concomitant]
     Active Substance: BETAMETHASONE DIPROPIONATE
     Indication: TINEA PEDIS
     Route: 061
     Dates: start: 20131211, end: 20131217
  10. ASTAT [Concomitant]
     Indication: TINEA PEDIS
     Route: 061
     Dates: start: 20131218
  11. ADETPHOS [Concomitant]
     Active Substance: ADENOSINE TRIPHOSPHATE
     Indication: SUDDEN HEARING LOSS
     Route: 048
     Dates: start: 20141115, end: 20141215
  12. NORVIR [Suspect]
     Active Substance: RITONAVIR
     Indication: HIV INFECTION
     Route: 048
     Dates: start: 20120418
  13. ALOSITOL [Concomitant]
     Active Substance: ALLOPURINOL
     Indication: GOUT
     Route: 048
     Dates: start: 20121003
  14. ADETPHOS [Concomitant]
     Active Substance: ADENOSINE TRIPHOSPHATE
     Indication: SUDDEN HEARING LOSS
     Route: 048
     Dates: start: 20150218, end: 20150220
  15. PREDONINE [Concomitant]
     Active Substance: PREDNISOLONE\PREDNISOLONE ACETATE\PREDNISOLONE SODIUM SUCCINATE
     Indication: SUDDEN HEARING LOSS
     Route: 048
     Dates: start: 20141125, end: 20141127
  16. PREDONINE [Concomitant]
     Active Substance: PREDNISOLONE\PREDNISOLONE ACETATE\PREDNISOLONE SODIUM SUCCINATE
     Indication: SUDDEN HEARING LOSS
     Route: 048
     Dates: start: 20141202, end: 20141203
  17. PREDONINE [Concomitant]
     Active Substance: PREDNISOLONE\PREDNISOLONE ACETATE\PREDNISOLONE SODIUM SUCCINATE
     Indication: SUDDEN HEARING LOSS
     Route: 048
     Dates: start: 20150218, end: 20150220
  18. PREZISTA [Suspect]
     Active Substance: DARUNAVIR ETHANOLATE
     Indication: HIV INFECTION
     Route: 048
     Dates: start: 20140326
  19. PREDONINE [Concomitant]
     Active Substance: PREDNISOLONE\PREDNISOLONE ACETATE\PREDNISOLONE SODIUM SUCCINATE
     Indication: SUDDEN HEARING LOSS
     Route: 048
     Dates: start: 20141122, end: 20141124
  20. TRUVADA [Suspect]
     Active Substance: EMTRICITABINE\TENOFOVIR DISOPROXIL FUMARATE
     Indication: HIV INFECTION
     Route: 048
     Dates: start: 20120418
  21. METHYCOBAL [Concomitant]
     Active Substance: METHYLCOBALAMIN
     Indication: SUDDEN HEARING LOSS
     Route: 048
     Dates: start: 20141115, end: 20141215
  22. PREDONINE [Concomitant]
     Active Substance: PREDNISOLONE\PREDNISOLONE ACETATE\PREDNISOLONE SODIUM SUCCINATE
     Indication: SUDDEN HEARING LOSS
     Route: 048
     Dates: start: 20141204, end: 20141205
  23. PREDONINE [Concomitant]
     Active Substance: PREDNISOLONE\PREDNISOLONE ACETATE\PREDNISOLONE SODIUM SUCCINATE
     Indication: SUDDEN HEARING LOSS
     Route: 048
     Dates: start: 20141206, end: 20141207
  24. PREDONINE [Concomitant]
     Active Substance: PREDNISOLONE\PREDNISOLONE ACETATE\PREDNISOLONE SODIUM SUCCINATE
     Indication: SUDDEN HEARING LOSS
     Route: 048
     Dates: start: 20141128, end: 20141130
  25. PREDONINE [Concomitant]
     Active Substance: PREDNISOLONE\PREDNISOLONE ACETATE\PREDNISOLONE SODIUM SUCCINATE
     Indication: SUDDEN HEARING LOSS
     Route: 048
     Dates: start: 20141119, end: 20141121
  26. METHYCOBAL [Concomitant]
     Active Substance: METHYLCOBALAMIN
     Indication: SUDDEN HEARING LOSS
     Route: 048
     Dates: start: 20150218, end: 20150220

REACTIONS (8)
  - Anogenital warts [Recovering/Resolving]
  - Gout [Recovering/Resolving]
  - Biliary tract disorder [Recovered/Resolved]
  - Rash [Recovered/Resolved]
  - Tinea pedis [Not Recovered/Not Resolved]
  - Lipid metabolism disorder [Recovered/Resolved]
  - Sudden hearing loss [Not Recovered/Not Resolved]
  - Syphilis [Not Recovered/Not Resolved]

NARRATIVE: CASE EVENT DATE: 20120428
